FAERS Safety Report 21009464 (Version 2)
Quarter: 2022Q3

REPORT INFORMATION
  Report Type: Spontaneous
  Country: PT (occurrence: PT)
  Receive Date: 20220627
  Receipt Date: 20220704
  Transmission Date: 20221027
  Serious: Yes (Other)
  Sender: FDA-Public Use
  Company Number: PT-ORGANON-O2206PRT002090

PATIENT
  Age: 4 Year
  Sex: Female

DRUGS (1)
  1. EBASTINE [Suspect]
     Active Substance: EBASTINE
     Indication: Rhinitis allergic
     Dosage: 0.5 MILLIGRAM PER MILLILITRE (MG/ML)
     Route: 048

REACTIONS (1)
  - Haematochezia [Recovered/Resolved]
